FAERS Safety Report 10011429 (Version 1)
Quarter: 2014Q1

REPORT INFORMATION
  Report Type: Spontaneous
  Country: US (occurrence: US)
  Receive Date: 20140314
  Receipt Date: 20140314
  Transmission Date: 20141002
  Serious: No
  Sender: FDA-Public Use
  Company Number: US-BAXTER-2014BAX011070

PATIENT
  Age: 50 Year
  Sex: Male

DRUGS (2)
  1. LACTATED RINGER^S INJECTION, USP [Suspect]
     Indication: PRODUCT USED FOR UNKNOWN INDICATION
     Route: 065
     Dates: start: 20140226, end: 20140226
  2. 0.9% SODIUM CHLORIDE [Concomitant]
     Indication: FLUSHING
     Dates: start: 20140226

REACTIONS (2)
  - Drug dispensing error [Recovered/Resolved]
  - Intercepted medication error [Recovered/Resolved]
